FAERS Safety Report 10269015 (Version 1)
Quarter: 2014Q2

REPORT INFORMATION
  Report Type: Spontaneous
  Country: US (occurrence: US)
  Receive Date: 20140630
  Receipt Date: 20140630
  Transmission Date: 20141212
  Serious: Yes (Other)
  Sender: FDA-Public Use
  Company Number: US-GILEAD-2014-0106980

PATIENT
  Age: 57 Year
  Sex: Male
  Weight: 114.29 kg

DRUGS (3)
  1. SOVALDI [Suspect]
     Indication: HEPATITIS C
     Dosage: 400 MG, UNK
     Route: 065
     Dates: start: 20140509
  2. SIMEPREVIR [Suspect]
     Indication: HEPATITIS C
     Dosage: UNK
     Route: 065
     Dates: start: 20140509
  3. RIBAVIRIN [Concomitant]
     Dosage: 1200 MG, UNK
     Dates: start: 20140509

REACTIONS (2)
  - Blood bilirubin increased [Unknown]
  - Off label use [Unknown]
